FAERS Safety Report 7819225-8 (Version None)
Quarter: 2011Q4

REPORT INFORMATION
  Report Type: 
  Country: None (occurrence: None)
  Receive Date: 20111018
  Receipt Date: 20111006
  Transmission Date: 20120403
  Serious: Yes (Hospitalization)
  Sender: FDA-Public Use
  Company Number: FR-SANOFI-AVENTIS-2011SA044112

PATIENT
  Age: 78 Year
  Sex: Female
  Weight: 100 kg

DRUGS (6)
  1. TEMISARTAN [Concomitant]
     Route: 065
  2. DRONEDARONE HCL [Suspect]
     Indication: ATRIAL FIBRILLATION
     Route: 048
     Dates: start: 20110104, end: 20110413
  3. FUROSEMIDE [Concomitant]
     Route: 065
  4. WARFARIN SODIUM [Concomitant]
     Route: 065
  5. NEBIVOLOL HCL [Concomitant]
     Route: 065
  6. ATORVASTATIN [Concomitant]
     Route: 065

REACTIONS (2)
  - INFECTION [None]
  - OEDEMA [None]
